FAERS Safety Report 8234089-9 (Version None)
Quarter: 2012Q1

REPORT INFORMATION
  Report Type: 
  Country: None (occurrence: None)
  Receive Date: 20120326
  Receipt Date: 20120326
  Transmission Date: 20120608
  Serious: Yes (Other)
  Sender: FDA-Public Use
  Company Number: None

PATIENT
  Age: 35 Year
  Sex: Female
  Weight: 48.08 kg

DRUGS (1)
  1. ZYRTEC [Suspect]
     Indication: DRUG THERAPY
     Dates: start: 20120320, end: 20120323

REACTIONS (1)
  - NIGHTMARE [None]
